FAERS Safety Report 4958579-7 (Version None)
Quarter: 2006Q1

REPORT INFORMATION
  Report Type: 
  Country: None (occurrence: None)
  Receive Date: 20060127
  Receipt Date: 20050906
  Transmission Date: 20060701
  Serious: Yes (Hospitalization)
  Sender: FDA-Public Use
  Company Number: 2005-US-00087

PATIENT
  Age: 39 Year
  Sex: Female

DRUGS (15)
  1. CLOZAPINE [Suspect]
     Indication: SCHIZOPHRENIA, PARANOID TYPE
     Dosage: 900 MG, QD, ORAL
     Route: 048
     Dates: start: 20050201, end: 20050601
  2. GALENIC /FLUTICASONE/SALMETEROL/ [Concomitant]
  3. HYDROCHLOROTHIAZIDE [Concomitant]
  4. METOPROLOL SUCCINATE [Concomitant]
  5. MOMETASONE [Concomitant]
  6. MULTIVITAMIN AND MINERAL [Concomitant]
  7. OLMESARTAN MEDOXOMIL [Concomitant]
  8. PROPRANOLOL [Concomitant]
  9. LOXAPINE [Concomitant]
  10. ZALEPLON [Concomitant]
  11. AMANTADINE HCL [Concomitant]
  12. DIPHENHYDRAMINE HCL [Concomitant]
  13. ESOMEPRAZOLE [Concomitant]
  14. FEXOFENADINE HCL [Concomitant]
  15. GALENIC [Concomitant]

REACTIONS (2)
  - DRUG INEFFECTIVE [None]
  - DRUG LEVEL BELOW THERAPEUTIC [None]
